FAERS Safety Report 10148284 (Version 3)
Quarter: 2014Q2

REPORT INFORMATION
  Report Type: Spontaneous
  Country: US (occurrence: US)
  Receive Date: 20140501
  Receipt Date: 20140602
  Transmission Date: 20141212
  Serious: No
  Sender: FDA-Public Use
  Company Number: US-AMGEN-USASP2014028723

PATIENT
  Age: 50 Year
  Sex: Female
  Weight: 61.68 kg

DRUGS (1)
  1. ENBREL [Suspect]
     Indication: PSORIASIS
     Dosage: 50 MG, QWK
     Route: 065
     Dates: start: 20090425, end: 20140422

REACTIONS (2)
  - Mycobacterium tuberculosis complex test positive [Not Recovered/Not Resolved]
  - Injection site induration [Unknown]
